FAERS Safety Report 14968008 (Version 4)
Quarter: 2018Q3

REPORT INFORMATION
  Report Type: Report from Study
  Country: HU (occurrence: HU)
  Receive Date: 20180604
  Receipt Date: 20180727
  Transmission Date: 20181010
  Serious: Yes (Death, Other)
  Sender: FDA-Public Use
  Company Number: PHHY2018HU013465

PATIENT
  Age: 70 Year
  Sex: Female

DRUGS (5)
  1. SOBYCOR [Concomitant]
     Active Substance: BISOPROLOL FUMARATE
     Indication: PRODUCT USED FOR UNKNOWN INDICATION
     Dosage: 5 MG, QD (IN THE MORNING)
     Route: 065
  2. VIDOTIN KOMB [Concomitant]
     Active Substance: INDAPAMIDE\PERINDOPRIL ERBUMINE
     Indication: PRODUCT USED FOR UNKNOWN INDICATION
     Dosage: 1 DF, QD (IN THE MORNING)
     Route: 065
  3. CARDURA [Concomitant]
     Active Substance: DOXAZOSIN MESYLATE
     Indication: PRODUCT USED FOR UNKNOWN INDICATION
     Dosage: 4 MG, QD (IN THE EVENING)
     Route: 065
  4. SANDOSTATIN LAR DEPOT [Suspect]
     Active Substance: OCTREOTIDE ACETATE
     Indication: NEUROENDOCRINE TUMOUR
     Dosage: 30 MG, UNK
     Route: 065
     Dates: start: 201712, end: 20180425
  5. LETROX [Concomitant]
     Active Substance: LEVOTHYROXINE SODIUM
     Indication: PRODUCT USED FOR UNKNOWN INDICATION
     Dosage: 50 UG (MCG), QD (IN THE MORNING)
     Route: 065

REACTIONS (19)
  - Pulmonary embolism [Fatal]
  - Blood alkaline phosphatase increased [Unknown]
  - Blood lactate dehydrogenase increased [Unknown]
  - Mean cell haemoglobin [Unknown]
  - White blood cell count increased [Unknown]
  - Small intestinal perforation [Unknown]
  - Deep vein thrombosis [Unknown]
  - Red cell distribution width increased [Unknown]
  - Diverticulum intestinal [Unknown]
  - Blood glucose increased [Unknown]
  - Obesity [Unknown]
  - Peritonitis [Unknown]
  - Lymphocyte count increased [Unknown]
  - Cardio-respiratory arrest [Fatal]
  - Gamma-glutamyltransferase increased [Unknown]
  - Drug level increased [Unknown]
  - Neutrophil percentage increased [Unknown]
  - Large intestine perforation [Recovered/Resolved]
  - C-reactive protein increased [Unknown]

NARRATIVE: CASE EVENT DATE: 20180517
